FAERS Safety Report 12108593 (Version 1)
Quarter: 2016Q1

REPORT INFORMATION
  Report Type: Spontaneous
  Country: US (occurrence: US)
  Receive Date: 20160224
  Receipt Date: 20160224
  Transmission Date: 20160526
  Serious: No
  Sender: FDA-Public Use
  Company Number: CHPA2016US002428

PATIENT
  Age: 20 Year
  Sex: Male

DRUGS (1)
  1. LORATADINE TABLETS [Suspect]
     Active Substance: LORATADINE
     Indication: HYPERSENSITIVITY
     Dosage: 1 DF, QD (TOOK ONE PILL IN MORNING)
     Route: 048
     Dates: start: 20160215, end: 20160215

REACTIONS (1)
  - Expired product administered [Unknown]
